FAERS Safety Report 8446978-0 (Version None)
Quarter: 2012Q2

REPORT INFORMATION
  Report Type: 
  Country: None (occurrence: None)
  Receive Date: 20120619
  Receipt Date: 20120612
  Transmission Date: 20120825
  Serious: Yes (Other)
  Sender: FDA-Public Use
  Company Number: US-BAYER-2012-027471

PATIENT
  Age: 79 Year
  Sex: Male

DRUGS (14)
  1. NEPHROCAPS [VIT C,VIT H,B12,B9,B3,PANTOTHEN AC,B6,B2,B1 HCL] [Concomitant]
     Dosage: 1 DF, QD
  2. PREVACID [Concomitant]
     Indication: GASTROOESOPHAGEAL REFLUX DISEASE
  3. GABAPENTIN [Concomitant]
     Indication: PAIN
     Dosage: 100 MG, UNK
  4. GADOLINIUM IN UNSPECIFIED DRUG [Suspect]
     Dosage: UNK
     Dates: start: 20060201, end: 20060201
  5. REGLAN [Concomitant]
     Indication: DIABETES MELLITUS
     Dosage: 5 MG, QD
  6. INSULIN [Concomitant]
     Indication: DIABETES MELLITUS
  7. GADOLINIUM IN UNSPECIFIED DRUG [Suspect]
     Dosage: UNK, ONCE
     Dates: start: 20060927, end: 20060927
  8. GADOLINIUM IN UNSPECIFIED DRUG [Suspect]
     Indication: NUCLEAR MAGNETIC RESONANCE IMAGING
     Dosage: UNK
     Dates: start: 20031128, end: 20031128
  9. PHOSLO [Concomitant]
     Indication: HYPERTENSION
     Dosage: 3 WITH EACH MEAL, 1 WITH EACH SNACK
  10. WARFARIN SODIUM [Concomitant]
     Indication: ANTICOAGULANT THERAPY
     Dosage: 5 MG, QD
  11. MAGNEVIST [Suspect]
     Indication: NUCLEAR MAGNETIC RESONANCE IMAGING ABDOMINAL
     Dosage: 20 ML, ONCE
     Route: 042
     Dates: start: 20061120, end: 20061120
  12. ALLOPURINOL [Concomitant]
     Indication: GOUT
     Dosage: 100 MG, QD
  13. TOPROL-XL [Concomitant]
     Indication: HYPERTENSION
     Dosage: 2.5 MG, QD
  14. SIMVASTATIN [Concomitant]
     Indication: BLOOD CHOLESTEROL INCREASED
     Dosage: 20 MG, QD

REACTIONS (32)
  - HYPOAESTHESIA [None]
  - SKIN INDURATION [None]
  - RENAL FAILURE CHRONIC [None]
  - ARTERIOVENOUS GRAFT SITE INFECTION [None]
  - FALL [None]
  - NEPHROGENIC SYSTEMIC FIBROSIS [None]
  - MUSCULAR WEAKNESS [None]
  - SKIN DISORDER [None]
  - ASTHENIA [None]
  - CARDIAC ARREST [None]
  - HAEMODIALYSIS [None]
  - PNEUMONIA [None]
  - SEPSIS [None]
  - CLOSTRIDIUM COLITIS [None]
  - MYOCARDIAL INFARCTION [None]
  - MUSCULOSKELETAL STIFFNESS [None]
  - GRIP STRENGTH DECREASED [None]
  - PERITONEAL DIALYSIS [None]
  - NEPHROSCLEROSIS [None]
  - JOINT CONTRACTURE [None]
  - DEVICE RELATED INFECTION [None]
  - GAIT DISTURBANCE [None]
  - MOBILITY DECREASED [None]
  - DEPRESSION [None]
  - OEDEMA [None]
  - ACTIVITIES OF DAILY LIVING IMPAIRED [None]
  - PELVIC FRACTURE [None]
  - BALANCE DISORDER [None]
  - DYSPHONIA [None]
  - PERITONITIS [None]
  - RENAL FAILURE ACUTE [None]
  - MUSCLE RIGIDITY [None]
